FAERS Safety Report 6696747-7 (Version None)
Quarter: 2010Q2

REPORT INFORMATION
  Report Type: 
  Country: None (occurrence: None)
  Receive Date: 20100421
  Receipt Date: 20100305
  Transmission Date: 20101027
  Serious: No
  Sender: FDA-Public Use
  Company Number: US-000063

PATIENT
  Sex: Female
  Weight: 52.5265 kg

DRUGS (3)
  1. KUVAN [Suspect]
     Indication: PHENYLKETONURIA
     Dosage: 1000 MG QD, ORAL
     Route: 048
     Dates: start: 20080101
  2. PHANAZOPYRIDINE [Concomitant]
  3. CIPROFLOXACIN [Concomitant]

REACTIONS (8)
  - DRUG DOSE OMISSION [None]
  - DYSPHAGIA [None]
  - EYE PRURITUS [None]
  - OROPHARYNGEAL PAIN [None]
  - RHINORRHOEA [None]
  - SNEEZING [None]
  - TONSILLAR HYPERTROPHY [None]
  - URINARY TRACT INFECTION [None]
